FAERS Safety Report 8241913-2 (Version None)
Quarter: 2012Q1

REPORT INFORMATION
  Report Type: 
  Country: None (occurrence: None)
  Receive Date: 20120329
  Receipt Date: 20120326
  Transmission Date: 20120608
  Serious: Yes (Hospitalization)
  Sender: FDA-Public Use
  Company Number: NL-AMGEN-NLDSP2012019324

PATIENT
  Age: 47 Year
  Sex: Female
  Weight: 59 kg

DRUGS (15)
  1. FLUCONAZOLE [Concomitant]
     Dosage: 200 MG, UNK
     Route: 048
     Dates: start: 20101001
  2. ORGAMETRIL [Concomitant]
     Dosage: 5 MG, UNK
     Route: 048
     Dates: start: 20101008
  3. ACETAMINOPHEN [Concomitant]
     Indication: PAIN
     Dosage: 300 MG, UNK
     Route: 048
     Dates: start: 20101008
  4. RITUXIMAB [Suspect]
     Indication: DIFFUSE LARGE B-CELL LYMPHOMA
     Dosage: 611.25 MG, UNK
     Route: 042
     Dates: start: 20101001
  5. DOXORUBICIN HCL [Suspect]
     Dosage: 83 MG, UNK
     Route: 042
     Dates: start: 20101015
  6. ACYCLOVIR [Concomitant]
     Indication: PROPHYLAXIS
     Dosage: 800 MG, UNK
     Route: 048
     Dates: start: 20101001
  7. PREDNISOLONE [Suspect]
     Indication: DIFFUSE LARGE B-CELL LYMPHOMA
     Dosage: 64 MG, UNK
     Route: 048
     Dates: start: 20101001
  8. VINCRISTINE [Suspect]
     Indication: DIFFUSE LARGE B-CELL LYMPHOMA
     Dosage: 2 MG, UNK
     Route: 042
     Dates: start: 20101001
  9. MEDROL [Concomitant]
     Indication: INFECTION
     Dosage: 64 MG, UNK
     Route: 048
     Dates: start: 20101001
  10. CYCLOPHOSPHAMIDE [Suspect]
     Indication: DIFFUSE LARGE B-CELL LYMPHOMA
     Dosage: 1222.5 MG, UNK
     Route: 042
     Dates: start: 20101001
  11. CYCLOPHOSPHAMIDE [Suspect]
     Dosage: 1245 MG, UNK
     Route: 042
     Dates: start: 20101015
  12. NEUPOGEN [Suspect]
     Indication: DIFFUSE LARGE B-CELL LYMPHOMA
     Dosage: 6 MG, UNK
     Route: 058
     Dates: start: 20101016
  13. DOXORUBICIN HCL [Suspect]
     Indication: DIFFUSE LARGE B-CELL LYMPHOMA
     Dosage: 81.5 MG, UNK
     Route: 042
     Dates: start: 20101001
  14. PREDNISOLONE [Suspect]
     Dosage: 100 MG, UNK
     Route: 042
     Dates: start: 20101015
  15. OMEPRAZOLE [Concomitant]
     Indication: COLITIS
     Dosage: 20 MG, UNK
     Route: 048
     Dates: start: 20101008

REACTIONS (2)
  - SUBARACHNOID HAEMORRHAGE [None]
  - HEADACHE [None]
